FAERS Safety Report 8620982-1 (Version None)
Quarter: 2012Q3

REPORT INFORMATION
  Report Type: 
  Country: None (occurrence: None)
  Receive Date: 20120824
  Receipt Date: 20120814
  Transmission Date: 20120928
  Serious: Yes (Other)
  Sender: FDA-Public Use
  Company Number: ES-ELI_LILLY_AND_COMPANY-ES201204007447

PATIENT
  Sex: Male
  Weight: 76 kg

DRUGS (4)
  1. CALCIUM [Concomitant]
     Indication: OSTEOPOROSIS
     Dosage: 500 MG, QD
     Route: 048
  2. TRAMADOL HCL [Concomitant]
     Indication: PAIN
     Dosage: 100 MG, QD
     Route: 048
  3. FORTEO [Suspect]
     Indication: OSTEOPOROSIS
     Dosage: 20 UG, QD
     Route: 058
     Dates: start: 20110622, end: 20120331
  4. TOVIAZ [Concomitant]
     Indication: URINARY INCONTINENCE
     Dosage: UNK, QD
     Route: 048

REACTIONS (1)
  - PROSTATE CANCER [None]
